FAERS Safety Report 4742159-2 (Version None)
Quarter: 2005Q3

REPORT INFORMATION
  Report Type: 
  Country: None (occurrence: None)
  Receive Date: 20050811
  Receipt Date: 20050307
  Transmission Date: 20060218
  Serious: No
  Sender: FDA-Public Use
  Company Number: US-GLAXOSMITHKLINE-A0548626A

PATIENT
  Age: 47 Year
  Sex: Female

DRUGS (5)
  1. PAXIL CR [Suspect]
     Indication: IRRITABILITY
     Dosage: 12.5MG PER DAY
     Route: 048
  2. METFORMIN [Concomitant]
  3. KARIVA [Concomitant]
  4. MULTI-VITAMIN [Concomitant]
  5. NASONEX [Concomitant]

REACTIONS (1)
  - PRURITUS [None]
